FAERS Safety Report 7622937-2 (Version None)
Quarter: 2011Q3

REPORT INFORMATION
  Report Type: 
  Country: None (occurrence: None)
  Receive Date: 20110720
  Receipt Date: 20110714
  Transmission Date: 20111222
  Serious: Yes (Hospitalization)
  Sender: FDA-Public Use
  Company Number: US-B.I. PHARMACEUTICALS,INC./RIDGEFIELD-2011-BP-05882BP

PATIENT
  Sex: Female

DRUGS (5)
  1. PRADAXA [Suspect]
     Indication: ATRIAL FIBRILLATION
     Dosage: 300 MG
     Dates: start: 20110131
  2. BISOPROLOL [Concomitant]
  3. XELODA [Concomitant]
  4. AVAPRO [Concomitant]
  5. DIGOXIN [Concomitant]

REACTIONS (1)
  - EPISTAXIS [None]
